FAERS Safety Report 9920317 (Version 1)
Quarter: 2014Q1

REPORT INFORMATION
  Report Type: Report from Study
  Country: US (occurrence: US)
  Receive Date: 20140224
  Receipt Date: 20140224
  Transmission Date: 20141002
  Serious: Yes (Hospitalization)
  Sender: FDA-Public Use
  Company Number: US-MPIJNJ-2014MPI000468

PATIENT
  Age: 59 Year
  Sex: Female
  Weight: 59.96 kg

DRUGS (9)
  1. VELCADE [Suspect]
     Indication: PLASMA CELL MYELOMA
     Dosage: UNK
  2. LENALIDOMIDE [Suspect]
     Indication: PLASMA CELL MYELOMA
     Dosage: 10 MG, (DAYS 1-28)
     Route: 048
     Dates: start: 20131230, end: 20140126
  3. DEXAMETHASONE [Suspect]
     Indication: PLASMA CELL MYELOMA
  4. ACICLOVIR [Concomitant]
     Dosage: UNK
     Dates: start: 201212
  5. MEPRON [Concomitant]
     Dosage: UNK
     Dates: start: 20140107
  6. OXYCONTIN [Concomitant]
     Dosage: UNK
     Dates: start: 20130115
  7. PANTOPRAZOLE [Concomitant]
     Dosage: UNK
     Dates: start: 201212
  8. WARFARIN [Concomitant]
     Dosage: UNK
     Dates: start: 20130618
  9. COL-RITE [Concomitant]
     Dosage: UNK
     Dates: start: 20121224

REACTIONS (1)
  - Influenza [Unknown]
